FAERS Safety Report 9239904 (Version 1)
Quarter: 2013Q2

REPORT INFORMATION
  Report Type: Spontaneous
  Country: AR (occurrence: AR)
  Receive Date: 20130418
  Receipt Date: 20130418
  Transmission Date: 20140414
  Serious: Yes (Other)
  Sender: FDA-Public Use
  Company Number: PHHY2013AR037788

PATIENT
  Sex: Female

DRUGS (2)
  1. DIOVAN [Suspect]
     Indication: HYPERTENSION
     Dosage: 1 DF(160MG), DAILY
     Route: 048
     Dates: end: 201304
  2. DIOVAN [Suspect]
     Dosage: 1 DF(160M), DAILY
     Route: 048

REACTIONS (3)
  - Breast neoplasm [Recovering/Resolving]
  - Convulsion [Recovered/Resolved]
  - Macule [Not Recovered/Not Resolved]
